FAERS Safety Report 23643171 (Version 3)
Quarter: 2024Q2

REPORT INFORMATION
  Report Type: Spontaneous
  Country: IN (occurrence: IN)
  Receive Date: 20240318
  Receipt Date: 20240620
  Transmission Date: 20240716
  Serious: Yes (Other)
  Sender: FDA-Public Use
  Company Number: IN-PFIZER INC-PV202300065974

PATIENT
  Age: 77 Year
  Sex: Female

DRUGS (1)
  1. DACOMITINIB [Suspect]
     Active Substance: DACOMITINIB
     Dosage: 30 MG OD
     Route: 048
     Dates: start: 20230228

REACTIONS (9)
  - Cerebral atrophy [Unknown]
  - Body mass index increased [Unknown]
  - Palmar-plantar erythrodysaesthesia syndrome [Unknown]
  - Pain [Unknown]
  - Blood pressure increased [Unknown]
  - Memory impairment [Unknown]
  - Cough [Unknown]
  - White matter lesion [Unknown]
  - Haemoglobin decreased [Unknown]

NARRATIVE: CASE EVENT DATE: 20230321
